FAERS Safety Report 8808525 (Version 1)
Quarter: 2012Q4

REPORT INFORMATION
  Report Type: Spontaneous
  Country: US (occurrence: None)
  Receive Date: 20120920
  Receipt Date: 20120920
  Transmission Date: 20130627
  Serious: Yes (Hospitalization, Disabling, Other)
  Sender: FDA-Public Use
  Company Number: None

PATIENT
  Sex: Male

DRUGS (1)
  1. SIMVASTATIN [Suspect]
     Indication: BLOOD CHOLESTEROL
     Dosage: 1 tablet at bedtime po
     Route: 048

REACTIONS (5)
  - Bacterial infection [None]
  - Fungal infection [None]
  - Migraine [None]
  - Muscle spasms [None]
  - Diarrhoea [None]
